FAERS Safety Report 9479002 (Version 2)
Quarter: 2013Q4

REPORT INFORMATION
  Report Type: Spontaneous
  Country: US (occurrence: US)
  Receive Date: 20130827
  Receipt Date: 20131105
  Transmission Date: 20140711
  Serious: Yes (Hospitalization)
  Sender: FDA-Public Use
  Company Number: US-ROXANE LABORATORIES, INC.-2013-RO-01410RO

PATIENT
  Age: 65 Year
  Sex: Male
  Weight: 100 kg

DRUGS (48)
  1. PREDNISONE [Suspect]
     Indication: GRAFT VERSUS HOST DISEASE
     Dosage: 50 MG
     Route: 048
     Dates: start: 20130608, end: 20130610
  2. PREDNISONE [Suspect]
     Dosage: 100 MG
     Route: 048
     Dates: start: 20130610
  3. BLINDED FIDAXOMICIN VS PLACEBO [Suspect]
     Indication: PROPHYLAXIS
     Dates: start: 20130509, end: 20130529
  4. BLINDED FIDAXOMICIN VS PLACEBO [Suspect]
     Dates: start: 20130531, end: 20130605
  5. VORICONAZOLE [Suspect]
     Indication: ANTIFUNGAL PROPHYLAXIS
     Route: 042
     Dates: start: 20130522, end: 20130528
  6. VORICONAZOLE [Suspect]
     Dosage: 600 MG
     Route: 048
     Dates: start: 20130528
  7. DILAUDID [Suspect]
     Indication: MUCOSAL INFLAMMATION
     Dates: start: 20130525, end: 20130526
  8. ACETAMINOPHEN [Concomitant]
     Dates: start: 20130506, end: 20130611
  9. SERTRALINE [Concomitant]
     Dates: start: 20130327, end: 20130607
  10. OMEPRAZOLE [Concomitant]
     Dates: start: 20130327, end: 20130608
  11. NORVASC [Concomitant]
     Dates: start: 20130511
  12. ONDANSETRON [Concomitant]
     Dates: start: 20130511, end: 20130518
  13. ONDANSETRON [Concomitant]
     Dates: start: 20130519
  14. CETIRIZINE [Concomitant]
     Dates: start: 20130511, end: 20130611
  15. PROCHLORPERAZINE [Concomitant]
     Dates: start: 20130514, end: 20130605
  16. HYDRALAZINE [Concomitant]
     Dates: start: 20130515, end: 20130605
  17. POTASSIUM CHLORIDE [Concomitant]
     Dates: start: 20130515, end: 20130531
  18. ZOFRAN [Concomitant]
     Dates: start: 20130515, end: 20130527
  19. LOSARTAN [Concomitant]
     Dates: start: 20130511
  20. ACYCLOVIR [Concomitant]
     Dates: start: 20130516, end: 20130610
  21. ACYCLOVIR [Concomitant]
     Dates: start: 20130327, end: 20130611
  22. DIPHENHYDRAMINE [Concomitant]
     Dates: start: 20130516, end: 20130524
  23. DIPHENHYDRAMINE [Concomitant]
     Dates: start: 20130520, end: 20130521
  24. PANTOPRAZOLE [Concomitant]
     Dates: start: 20130517, end: 20130605
  25. OCEAN SPRAY [Concomitant]
     Route: 045
     Dates: start: 20130519
  26. CYCLOPHOSPHAMIDE [Concomitant]
     Dates: start: 20130519, end: 20130520
  27. MESNA [Concomitant]
     Dates: start: 20130519, end: 20130520
  28. TUMS [Concomitant]
     Dates: start: 20130519
  29. TYLENOL [Concomitant]
     Dates: start: 20130521, end: 20130521
  30. CYCLOSPORINE [Concomitant]
     Dates: start: 20130521, end: 20130612
  31. LEVOFLOXACIN [Concomitant]
     Dates: start: 20130522, end: 20130527
  32. NYSTATIN [Concomitant]
     Dates: start: 20130522, end: 20130523
  33. AMBIEN [Concomitant]
     Dates: start: 20130525
  34. OXYCODONE [Concomitant]
     Dates: start: 20130525, end: 20130525
  35. BENADRYL [Concomitant]
     Dates: start: 20130526, end: 20130526
  36. MAGNESIUM SULFATE [Concomitant]
     Dates: start: 20130522, end: 20130529
  37. HYDROMORPHONE [Concomitant]
     Dates: start: 20130527, end: 20130612
  38. MORPHINE [Concomitant]
     Dates: start: 20130528
  39. CEFEPIME [Concomitant]
     Dates: start: 20130528, end: 20130603
  40. TRIAMCINOLONE [Concomitant]
     Dates: start: 20130529
  41. MICAFUNGIN [Concomitant]
     Dates: start: 20130529, end: 20130611
  42. SUCRALFATE [Concomitant]
     Dates: start: 20130529, end: 20130530
  43. FENTANYL [Concomitant]
     Dates: start: 20130529, end: 20130606
  44. DOCUSATE [Concomitant]
     Dates: start: 20130327, end: 20130611
  45. SENNA [Concomitant]
     Dates: start: 20130327
  46. CALCIUM CARBONATE [Concomitant]
     Dates: start: 20130327, end: 20130611
  47. DILANTIN [Concomitant]
     Dates: start: 20130510, end: 20130515
  48. FLUCONAZOLE [Concomitant]
     Dates: start: 20130511, end: 20130521

REACTIONS (1)
  - Delirium [Recovered/Resolved]
